FAERS Safety Report 7760043-7 (Version None)
Quarter: 2011Q3

REPORT INFORMATION
  Report Type: 
  Country: None (occurrence: None)
  Receive Date: 20110919
  Receipt Date: 20110906
  Transmission Date: 20111222
  Serious: Yes (Other)
  Sender: FDA-Public Use
  Company Number: US-BAYER-2011-015051

PATIENT
  Age: 19 Year
  Sex: Female
  Weight: 95.238 kg

DRUGS (27)
  1. PRILOSEC [Concomitant]
     Dosage: 20 MG, UNK
     Route: 048
     Dates: start: 20081110
  2. CARAFATE [Concomitant]
     Dosage: UNK UNK, QID
     Route: 048
     Dates: start: 20081211
  3. IBUPROFEN [Concomitant]
     Dosage: 800 MG, PRN
     Route: 048
     Dates: start: 20081222
  4. CATAFLAM [Concomitant]
     Indication: PAIN
     Dosage: 50 MG, PRN
     Route: 048
     Dates: start: 20081229
  5. ZOLOFT [Concomitant]
     Dosage: 50 MG, QD
     Route: 048
  6. PHENERGAN HCL [Concomitant]
     Dosage: 50 MG, UNK
     Dates: start: 20081129
  7. OMEPRAZOLE [Concomitant]
     Dosage: 40 MG, UNK
     Route: 048
     Dates: start: 20090128
  8. FERROUS SULFATE TAB [Concomitant]
     Dosage: UNK UNK, QD
     Route: 048
  9. DIFLUCAN [Concomitant]
     Dosage: 150 MG, QD
     Route: 048
  10. PROZAC [Concomitant]
     Dosage: 20 MG, UNK
     Route: 048
     Dates: start: 20081211
  11. TYLENOL W/ CODEINE NO. 3 [Concomitant]
     Dosage: UNK UNK, PRN
     Route: 048
     Dates: start: 20081222
  12. AZITHROMYCIN [Concomitant]
     Dosage: UNK
     Route: 048
     Dates: start: 20081229
  13. PROTONIX [Concomitant]
  14. YAZ [Suspect]
     Indication: CONTRACEPTION
     Dosage: UNK
     Dates: start: 20081001, end: 20081201
  15. ALBUTEROL [Concomitant]
     Dosage: UNK UNK, PRN
  16. ZANTAC [Concomitant]
  17. YAZ [Suspect]
     Indication: PREMENSTRUAL SYNDROME
  18. NEXIUM [Concomitant]
     Dosage: 40 MG, QD
     Route: 048
     Dates: start: 20081211
  19. REGLAN [Concomitant]
     Indication: NAUSEA
     Dosage: 10 MG, PRN
     Route: 048
     Dates: start: 20081222
  20. BENADRYL [Concomitant]
     Indication: COUGH
     Dosage: UNK
     Route: 048
     Dates: start: 20081229
  21. NAPROXEN SODIUM [Concomitant]
     Indication: PAIN
     Dosage: UNK UNK, PRN
     Route: 048
     Dates: start: 20081229
  22. ALLEGRA D 24 HOUR [Concomitant]
     Indication: MULTIPLE ALLERGIES
     Dosage: UNK UNK, PRN
     Route: 048
     Dates: start: 20081229
  23. YAZ [Suspect]
     Indication: ACNE
  24. MIRENA [Concomitant]
     Dosage: UNK
     Dates: start: 20081231
  25. VICODIN [Concomitant]
     Indication: PAIN
     Route: 048
  26. PRENATAL VITAMINS [VIT C,B5,B12,D2,B3,B6,RETINOL PALMIT,B2,B1 MONO [Concomitant]
     Dosage: UNK UNK, QD
     Route: 048
  27. LACTAID [Concomitant]
     Dosage: UNK
     Route: 048
     Dates: start: 20081211

REACTIONS (4)
  - CHOLECYSTITIS CHRONIC [None]
  - CHOLELITHIASIS [None]
  - INJURY [None]
  - ABDOMINAL PAIN UPPER [None]
